FAERS Safety Report 17244552 (Version 3)
Quarter: 2020Q1

REPORT INFORMATION
  Report Type: Report from Study
  Country: US (occurrence: US)
  Receive Date: 20200107
  Receipt Date: 20200203
  Transmission Date: 20200409
  Serious: Yes (Hospitalization, Other)
  Sender: FDA-Public Use
  Company Number: US-GILEAD-2019-0440396

PATIENT
  Age: 9 Year
  Sex: Female

DRUGS (6)
  1. AZTREONAM LYSINE [Suspect]
     Active Substance: AZTREONAM LYSINE
     Dosage: 1 DOSAGE FORM, TID
     Route: 055
  2. PULMOZYME [Concomitant]
     Active Substance: DORNASE ALFA
  3. TOBRAMYCIN. [Concomitant]
     Active Substance: TOBRAMYCIN
  4. ORKAMBI [Concomitant]
     Active Substance: IVACAFTOR\LUMACAFTOR
  5. AZTREONAM LYSINE [Suspect]
     Active Substance: AZTREONAM LYSINE
     Indication: CYSTIC FIBROSIS
     Dosage: 75 MG, TID
     Route: 055
  6. KITABIS PAK [Concomitant]
     Active Substance: TOBRAMYCIN
     Dosage: 300 MG, BID
     Route: 055

REACTIONS (4)
  - Cystic fibrosis [Unknown]
  - Infective pulmonary exacerbation of cystic fibrosis [Unknown]
  - Upper respiratory tract infection [Not Recovered/Not Resolved]
  - Infection [Unknown]

NARRATIVE: CASE EVENT DATE: 202001
